FAERS Safety Report 10072499 (Version 1)
Quarter: 2014Q1

REPORT INFORMATION
  Report Type: Spontaneous
  Country: US (occurrence: None)
  Receive Date: 20140314
  Receipt Date: 20140314
  Transmission Date: 20141002
  Serious: Yes (Other)
  Sender: FDA-Public Use
  Company Number: 103060

PATIENT
  Age: 57 Year
  Sex: Male
  Weight: 90.72 kg

DRUGS (11)
  1. ROHTO COOL [Suspect]
     Indication: ERYTHEMA
     Dosage: 2-3X/DAY
  2. ROHTO COOL [Suspect]
     Indication: DRY EYE
     Dosage: 2-3X/DAY
  3. NAPROXEN SODIUM [Concomitant]
  4. SAXAGLIPTIN HCL [Concomitant]
  5. FENOFIBRATE [Concomitant]
  6. NEBIVOLOL [Concomitant]
  7. OLMESARTAN MEDOXOMIL [Concomitant]
  8. AMLODIPINE BESYLATE [Concomitant]
  9. HYDROCHLOROTHIAZIDE [Concomitant]
  10. POTASSIUM CHLORIDE [Concomitant]
  11. NATURE THYROID [Concomitant]

REACTIONS (2)
  - Conjunctivitis [None]
  - Dry eye [None]
